FAERS Safety Report 5666538-4 (Version None)
Quarter: 2008Q1

REPORT INFORMATION
  Report Type: 
  Country: None (occurrence: None)
  Receive Date: 20080314
  Receipt Date: 20080102
  Transmission Date: 20080703
  Serious: No
  Sender: FDA-Public Use
  Company Number: US-ABBOTT-07P-163-0430962-00

PATIENT
  Sex: Female
  Weight: 96.702 kg

DRUGS (6)
  1. HUMIRA [Suspect]
     Indication: CROHN'S DISEASE
     Route: 058
     Dates: start: 20071210, end: 20071210
  2. HUMIRA [Suspect]
     Route: 058
     Dates: start: 20071224
  3. HUMIRA [Suspect]
     Route: 058
     Dates: start: 20071201
  4. MESALAMINE [Concomitant]
     Indication: CROHN'S DISEASE
     Dates: end: 20070101
  5. TOCORT [Concomitant]
     Indication: DRUG USE FOR UNKNOWN INDICATION
  6. LEVOTHYROXINE SODIUM [Concomitant]
     Indication: DRUG USE FOR UNKNOWN INDICATION

REACTIONS (3)
  - ABDOMINAL DISTENSION [None]
  - INJECTION SITE URTICARIA [None]
  - URTICARIA [None]
